FAERS Safety Report 9861683 (Version 1)
Quarter: 2014Q1

REPORT INFORMATION
  Report Type: Spontaneous
  Country: US (occurrence: None)
  Receive Date: 20140131
  Receipt Date: 20140131
  Transmission Date: 20141002
  Serious: Yes (Hospitalization)
  Sender: FDA-Public Use
  Company Number: None

PATIENT
  Age: 77 Year
  Sex: Male
  Weight: 75.3 kg

DRUGS (2)
  1. ENOXAPARIN SODIUM [Suspect]
     Indication: THROMBOSIS
     Dosage: 80MG/0.8ML ?QUANITITY=1?FREQUENCY=1?INJECTION IN STOMACH
  2. ENOXAPARIN SODIUM [Suspect]
     Dosage: 80MG/0.8ML ?QUANITITY=1?FREQUENCY=1?INJECTION IN STOMACH

REACTIONS (5)
  - Local swelling [None]
  - Pharyngeal oedema [None]
  - Local swelling [None]
  - Dyspnoea [None]
  - Blood pressure increased [None]
